FAERS Safety Report 16149616 (Version 1)
Quarter: 2019Q2

REPORT INFORMATION
  Report Type: Spontaneous
  Country: US (occurrence: US)
  Receive Date: 20190402
  Receipt Date: 20190402
  Transmission Date: 20190711
  Serious: No
  Sender: FDA-Public Use
  Company Number: US-ALLERGAN-1840220US

PATIENT
  Sex: Female

DRUGS (1)
  1. LILETTA [Suspect]
     Active Substance: LEVONORGESTREL
     Indication: PRODUCT USED FOR UNKNOWN INDICATION
     Dosage: 52 MG, SINGLE
     Route: 015
     Dates: start: 20170727, end: 20180814

REACTIONS (4)
  - Metrorrhagia [Unknown]
  - Uterine haemorrhage [Unknown]
  - Device expulsion [Unknown]
  - Vaginal odour [Unknown]

NARRATIVE: CASE EVENT DATE: 201806
